FAERS Safety Report 13443050 (Version 1)
Quarter: 2017Q2

REPORT INFORMATION
  Report Type: Spontaneous
  Country: SE (occurrence: SE)
  Receive Date: 20170414
  Receipt Date: 20170414
  Transmission Date: 20170830
  Serious: Yes (Hospitalization)
  Sender: FDA-Public Use
  Company Number: SE-TEVA-756404ACC

PATIENT
  Age: 58 Year
  Sex: Female
  Weight: 130 kg

DRUGS (2)
  1. ALVEDON 665 MG MODIFIED-RELEASE TABLET [Suspect]
     Active Substance: ACETAMINOPHEN
     Dosage: 30 TABLET
     Route: 048
     Dates: start: 20161023, end: 20161023
  2. STESOLID [Suspect]
     Active Substance: DIAZEPAM
     Dosage: 20 ST 5 MG STESOLID
     Dates: start: 20161023, end: 20161023

REACTIONS (4)
  - Toxicity to various agents [Recovered/Resolved]
  - Suicide attempt [Recovered/Resolved]
  - Analgesic drug level increased [Recovered/Resolved]
  - Overdose [Recovered/Resolved]

NARRATIVE: CASE EVENT DATE: 20161023
